FAERS Safety Report 9698466 (Version 1)
Quarter: 2013Q4

REPORT INFORMATION
  Report Type: Spontaneous
  Country: US (occurrence: US)
  Receive Date: 20131120
  Receipt Date: 20131120
  Transmission Date: 20140711
  Serious: No
  Sender: FDA-Public Use
  Company Number: US-MALLINCKRODT-T201304844

PATIENT
  Sex: Male

DRUGS (1)
  1. GABLOFEN [Suspect]
     Indication: MUSCLE SPASTICITY
     Dosage: 700 MCG/DAY
     Route: 037

REACTIONS (4)
  - Wound [Unknown]
  - Wound secretion [Unknown]
  - Drug ineffective [Unknown]
  - Muscle spasticity [Unknown]
